FAERS Safety Report 8205993-2 (Version None)
Quarter: 2012Q1

REPORT INFORMATION
  Report Type: 
  Country: None (occurrence: None)
  Receive Date: 20120309
  Receipt Date: 20120229
  Transmission Date: 20120608
  Serious: Yes (Hospitalization, Other)
  Sender: FDA-Public Use
  Company Number: 2012SP011450

PATIENT
  Age: 34 Year
  Sex: Female

DRUGS (7)
  1. TRANEXAMIC ACID [Suspect]
     Indication: PRODUCT USED FOR UNKNOWN INDICATION
     Dates: start: 20100922, end: 20100928
  2. LANSOPRAZOLE [Suspect]
     Indication: GASTROOESOPHAGEAL REFLUX PROPHYLAXIS
     Dosage: 30 MG;PO
     Route: 048
     Dates: start: 20100907, end: 20100928
  3. NPLATE [Suspect]
     Indication: IDIOPATHIC THROMBOCYTOPENIC PURPURA
     Dosage: 1 MG/KG;SC
     Route: 058
     Dates: start: 20100420, end: 20100920
  4. NORETHINDRONE [Suspect]
     Indication: PRODUCT USED FOR UNKNOWN INDICATION
     Dosage: 5 MG
     Dates: start: 20100922, end: 20100928
  5. DEXAMETHASONE TAB [Suspect]
     Indication: ANTIEMETIC SUPPORTIVE CARE
     Dosage: PO
     Route: 048
     Dates: start: 20100907, end: 20100910
  6. RITUXIMAB (RITUXIMAB) [Suspect]
     Indication: HAEMATOLOGY TEST ABNORMAL
     Dosage: 375 MG;BIW;IV
     Route: 042
     Dates: start: 20100917, end: 20100924
  7. IMMUNE GLOBULIN (HUMAN) [Suspect]
     Indication: PRODUCT USED FOR UNKNOWN INDICATION
     Dosage: 1000 MG/KG;IV
     Route: 042

REACTIONS (8)
  - HAEMOGLOBIN DECREASED [None]
  - VAGINAL HAEMORRHAGE [None]
  - MELAENA [None]
  - HAEMORRHAGE [None]
  - RECTAL HAEMORRHAGE [None]
  - RASH MACULO-PAPULAR [None]
  - PURPURA [None]
  - RASH ERYTHEMATOUS [None]
